FAERS Safety Report 7331265-4 (Version None)
Quarter: 2011Q1

REPORT INFORMATION
  Report Type: 
  Country: None (occurrence: None)
  Receive Date: 20110222
  Receipt Date: 20110211
  Transmission Date: 20110831
  Serious: Yes (Other)
  Sender: FDA-Public Use
  Company Number: 2011SP006460

PATIENT
  Age: 36 Year
  Sex: Female
  Weight: 62.1428 kg

DRUGS (4)
  1. SERC /00034201/ [Concomitant]
  2. NUVARING [Suspect]
     Indication: PRODUCT USED FOR UNKNOWN INDICATION
  3. ADVIL LIQUI-GELS [Concomitant]
  4. TYLENOL-500 [Concomitant]

REACTIONS (7)
  - FATIGUE [None]
  - DYSARTHRIA [None]
  - BLOOD PRESSURE DECREASED [None]
  - HYPOTONIA [None]
  - MOVEMENT DISORDER [None]
  - HEART RATE DECREASED [None]
  - SYNCOPE [None]
